FAERS Safety Report 16707522 (Version 1)
Quarter: 2019Q3

REPORT INFORMATION
  Report Type: Spontaneous
  Country: KW (occurrence: KW)
  Receive Date: 20190815
  Receipt Date: 20190815
  Transmission Date: 20191004
  Serious: Yes (Other)
  Sender: FDA-Public Use
  Company Number: KW-NOVOPROD-678990

PATIENT
  Age: 36 Year
  Sex: Male

DRUGS (2)
  1. NORDITROPIN [Suspect]
     Active Substance: SOMATROPIN
     Indication: MUSCLE BUILDING THERAPY
     Dosage: UNK
     Route: 065
  2. NORDITROPIN [Suspect]
     Active Substance: SOMATROPIN
     Dosage: UNK
     Route: 065

REACTIONS (3)
  - Diabetes mellitus [Unknown]
  - End stage renal disease [Unknown]
  - Drug abuse [Unknown]
